FAERS Safety Report 13395542 (Version 1)
Quarter: 2017Q2

REPORT INFORMATION
  Report Type: Spontaneous
  Country: US (occurrence: US)
  Receive Date: 20170403
  Receipt Date: 20170403
  Transmission Date: 20170830
  Serious: No
  Sender: FDA-Public Use
  Company Number: US-BAYER-2017-062838

PATIENT
  Age: 57 Year
  Sex: Female
  Weight: 61 kg

DRUGS (2)
  1. MIRALAX [Suspect]
     Active Substance: POLYETHYLENE GLYCOL 3350
     Indication: GASTROINTESTINAL DISORDER
     Route: 048
     Dates: start: 20170330, end: 20170331
  2. IRON SUPPLEMENT [Concomitant]
     Active Substance: IRON

REACTIONS (2)
  - Patient dissatisfaction with treatment [Not Recovered/Not Resolved]
  - Product quality issue [None]

NARRATIVE: CASE EVENT DATE: 20170330
